FAERS Safety Report 13385025 (Version 1)
Quarter: 2017Q1

REPORT INFORMATION
  Report Type: Spontaneous
  Country: US (occurrence: US)
  Receive Date: 20170330
  Receipt Date: 20170330
  Transmission Date: 20170429
  Serious: No
  Sender: FDA-Public Use
  Company Number: None

PATIENT
  Age: 55 Year
  Sex: Female
  Weight: 58.5 kg

DRUGS (7)
  1. REMICADE [Suspect]
     Active Substance: INFLIXIMAB
     Indication: RHEUMATOID ARTHRITIS
     Route: 042
  2. MULTIVITAMINS [Concomitant]
     Active Substance: VITAMINS
  3. FISH OIL [Concomitant]
     Active Substance: FISH OIL
  4. BABY ASPIRIN [Concomitant]
     Active Substance: ASPIRIN
  5. CALCIUM [Concomitant]
     Active Substance: CALCIUM
  6. WELLBUTRIN [Concomitant]
     Active Substance: BUPROPION HYDROCHLORIDE
  7. VITAMIN D [Concomitant]
     Active Substance: CHOLECALCIFEROL

REACTIONS (21)
  - Hypotension [None]
  - Rhinorrhoea [None]
  - Bone pain [None]
  - Lymphadenopathy [None]
  - Lymph node pain [None]
  - Body temperature increased [None]
  - Peripheral coldness [None]
  - Arthralgia [None]
  - Peripheral swelling [None]
  - Anxiety [None]
  - Pruritus [None]
  - Nasal congestion [None]
  - Pain [None]
  - Loss of consciousness [None]
  - Hypertension [None]
  - Tonsillar neoplasm [None]
  - Local swelling [None]
  - Abdominal pain upper [None]
  - Vision blurred [None]
  - Stomatitis [None]
  - Eye pain [None]

NARRATIVE: CASE EVENT DATE: 20150203
